FAERS Safety Report 4330517-X (Version None)
Quarter: 2004Q2

REPORT INFORMATION
  Report Type: 
  Country: None (occurrence: None)
  Receive Date: 20040401
  Receipt Date: 20040401
  Transmission Date: 20050107
  Serious: Yes (Hospitalization)
  Sender: FDA-Public Use
  Company Number: None

PATIENT
  Age: 88 Year

DRUGS (1)
  1. MICARDIS HCT [Suspect]
     Dosage: 80/12.5 MG ORAL
     Route: 048

REACTIONS (1)
  - RENAL FAILURE ACUTE [None]
